FAERS Safety Report 14310819 (Version 2)
Quarter: 2018Q1

REPORT INFORMATION
  Report Type: Report from Study
  Country: None (occurrence: US)
  Receive Date: 20171220
  Receipt Date: 20180112
  Transmission Date: 20180509
  Serious: Yes (Other)
  Sender: FDA-Public Use
  Company Number: US-ABBVIE-17K-163-2198964-00

PATIENT
  Age: 67 Year
  Sex: Female
  Weight: 56.75 kg

DRUGS (7)
  1. LIALDA [Concomitant]
     Active Substance: MESALAMINE
     Indication: COLITIS ULCERATIVE
  2. ZANTAC [Concomitant]
     Active Substance: RANITIDINE HYDROCHLORIDE
     Indication: GASTROOESOPHAGEAL REFLUX DISEASE
  3. HUMIRA [Suspect]
     Active Substance: ADALIMUMAB
     Indication: COLITIS ULCERATIVE
     Route: 058
     Dates: start: 201612
  4. ROSUVASTATIN. [Concomitant]
     Active Substance: ROSUVASTATIN
     Indication: BLOOD CHOLESTEROL INCREASED
  5. PROPRANOLOL [Concomitant]
     Active Substance: PROPRANOLOL HYDROCHLORIDE
     Indication: ATRIAL FIBRILLATION
  6. LOSARTAN. [Concomitant]
     Active Substance: LOSARTAN
     Indication: HYPERTENSION
  7. AMLODIPINE [Concomitant]
     Active Substance: AMLODIPINE BESYLATE
     Indication: HYPERTENSION

REACTIONS (3)
  - Rectal haemorrhage [Recovered/Resolved]
  - Crohn^s disease [Recovered/Resolved]
  - Intestinal polyp [Recovered/Resolved]

NARRATIVE: CASE EVENT DATE: 201708
